FAERS Safety Report 20764524 (Version 3)
Quarter: 2023Q1

REPORT INFORMATION
  Report Type: Report from Study
  Country: US (occurrence: US)
  Receive Date: 20220428
  Receipt Date: 20230223
  Transmission Date: 20230418
  Serious: Yes (Hospitalization, Other)
  Sender: FDA-Public Use
  Company Number: US-GLAXOSMITHKLINE-US2022GSK062306

PATIENT

DRUGS (9)
  1. DOSTARLIMAB [Suspect]
     Active Substance: DOSTARLIMAB
     Indication: Breast cancer
     Dosage: 500 MG, WE
     Route: 042
     Dates: start: 20210922, end: 20210922
  2. DOSTARLIMAB [Suspect]
     Active Substance: DOSTARLIMAB
     Dosage: 500 MG, WE
     Route: 042
     Dates: start: 20211013, end: 20211013
  3. PACLITAXEL [Suspect]
     Active Substance: PACLITAXEL
     Indication: Breast cancer
     Dosage: 300 MG (3 DAYS PER WEEK)
     Route: 048
     Dates: start: 20210922, end: 20211013
  4. PACLITAXEL [Suspect]
     Active Substance: PACLITAXEL
     Dosage: 15 MG (3 DAYS/ WEEK)
     Route: 048
     Dates: start: 20210922, end: 20211020
  5. PACLITAXEL [Suspect]
     Active Substance: PACLITAXEL
     Dosage: 240 MG (3 DAYS /WEEK)
     Route: 048
     Dates: start: 20211020, end: 20211020
  6. LOPERAMIDE [Concomitant]
     Active Substance: LOPERAMIDE
     Indication: Diarrhoea
     Dosage: 2 MG, PRN
     Route: 048
     Dates: start: 20220311
  7. ENCEQUIDAR MESYLATE MONOHYDRATE [Suspect]
     Active Substance: ENCEQUIDAR MESYLATE MONOHYDRATE
  8. ENCEQUIDAR MESYLATE MONOHYDRATE [Suspect]
     Active Substance: ENCEQUIDAR MESYLATE MONOHYDRATE
  9. ENCEQUIDAR MESYLATE MONOHYDRATE [Suspect]
     Active Substance: ENCEQUIDAR MESYLATE MONOHYDRATE

REACTIONS (2)
  - Colitis [Recovered/Resolved]
  - Abdominal pain [Unknown]

NARRATIVE: CASE EVENT DATE: 20220419
